FAERS Safety Report 22630562 (Version 7)
Quarter: 2024Q4

REPORT INFORMATION
  Report Type: Report from Study
  Country: CA (occurrence: CA)
  Receive Date: 20230622
  Receipt Date: 20241212
  Transmission Date: 20250114
  Serious: Yes (Other)
  Sender: BAUSCH AND LOMB
  Company Number: CA-BAUSCH-BL-2023-009529

PATIENT
  Age: 20 Year
  Sex: Female

DRUGS (4)
  1. SILIQ [Suspect]
     Active Substance: BRODALUMAB
     Indication: Psoriasis
     Dosage: 210MG/ 1.5 ML, WEEKLY (WEEK 0 - WEEK 2)
     Route: 058
     Dates: start: 20210421, end: 202105
  2. SILIQ [Suspect]
     Active Substance: BRODALUMAB
     Dosage: 210MG/1.5 ML, Q2 WEEKS
     Route: 058
     Dates: start: 202105, end: 202307
  3. SILIQ [Suspect]
     Active Substance: BRODALUMAB
     Dosage: 210MG/1.5 ML, WEEKLY
     Route: 058
     Dates: start: 20230714
  4. SILIQ [Suspect]
     Active Substance: BRODALUMAB
     Dosage: 210MG/1.5 ML, Q2 WEEKS
     Route: 058
     Dates: start: 2024

REACTIONS (7)
  - Knee operation [Unknown]
  - Psoriasis [Not Recovered/Not Resolved]
  - Disease recurrence [Not Recovered/Not Resolved]
  - Tooth disorder [Not Recovered/Not Resolved]
  - Streptococcal infection [Unknown]
  - Patient dissatisfaction with treatment [Unknown]
  - Intentional product use issue [Unknown]

NARRATIVE: CASE EVENT DATE: 20230101
